FAERS Safety Report 8234104-2 (Version None)
Quarter: 2012Q1

REPORT INFORMATION
  Report Type: 
  Country: None (occurrence: None)
  Receive Date: 20120326
  Receipt Date: 20120326
  Transmission Date: 20120608
  Serious: Yes (Life-Threatening, Other)
  Sender: FDA-Public Use
  Company Number: None

PATIENT
  Age: 47 Year
  Sex: Female
  Weight: 77.11 kg

DRUGS (2)
  1. CYMBALTA [Suspect]
     Indication: PAIN
     Dosage: 20.0 MG
     Route: 048
  2. CYMBALTA [Suspect]
     Indication: INTERVERTEBRAL DISC PROTRUSION
     Dosage: 20.0 MG
     Route: 048

REACTIONS (3)
  - MUSCLE TWITCHING [None]
  - TREMOR [None]
  - DIARRHOEA [None]
